FAERS Safety Report 10011265 (Version 1)
Quarter: 2014Q1

REPORT INFORMATION
  Report Type: Spontaneous
  Country: US (occurrence: None)
  Receive Date: 20140304
  Receipt Date: 20140304
  Transmission Date: 20141002
  Serious: Yes (Other)
  Sender: FDA-Public Use
  Company Number: RB-1483-2008

PATIENT
  Age: 6 Year
  Sex: Male

DRUGS (1)
  1. SUBOXONE (RECKITT BENCKISER) [Suspect]
     Indication: DRUG DEPENDENCE
     Route: 064
     Dates: start: 20061228, end: 20070628

REACTIONS (2)
  - Foetal exposure during pregnancy [None]
  - Drug withdrawal syndrome neonatal [None]
